FAERS Safety Report 25971370 (Version 1)
Quarter: 2025Q4

REPORT INFORMATION
  Report Type: Spontaneous
  Country: JP (occurrence: JP)
  Receive Date: 20251028
  Receipt Date: 20251028
  Transmission Date: 20260117
  Serious: Yes (Other)
  Sender: TAKEDA
  Company Number: JP-TAKEDA-2025TJP010895

PATIENT
  Age: 6 Decade
  Sex: Male

DRUGS (3)
  1. INTUNIV [Suspect]
     Active Substance: GUANFACINE HYDROCHLORIDE
     Indication: Product used for unknown indication
     Dosage: UNK
  2. CONCERTA [Suspect]
     Active Substance: METHYLPHENIDATE HYDROCHLORIDE
     Indication: Product used for unknown indication
     Dosage: UNK
  3. STRATTERA [Suspect]
     Active Substance: ATOMOXETINE HYDROCHLORIDE
     Indication: Product used for unknown indication
     Dosage: UNK

REACTIONS (11)
  - Meniere^s disease [Unknown]
  - Chronic hepatitis [Unknown]
  - Panic disorder [Unknown]
  - Attention deficit hyperactivity disorder [Unknown]
  - Neurosis [Unknown]
  - Autonomic nervous system imbalance [Unknown]
  - Hypercholesterolaemia [Unknown]
  - Haemorrhoids [Unknown]
  - Depression [Unknown]
  - Insomnia [Unknown]
  - Constipation [Unknown]
